FAERS Safety Report 24000666 (Version 1)
Quarter: 2024Q2

REPORT INFORMATION
  Report Type: Spontaneous
  Country: JP (occurrence: JP)
  Receive Date: 20240621
  Receipt Date: 20240621
  Transmission Date: 20240716
  Serious: Yes (Death, Other)
  Sender: FDA-Public Use
  Company Number: JP-AMGEN-JPNSP2023160838

PATIENT
  Sex: Male

DRUGS (4)
  1. LUMAKRAS [Suspect]
     Active Substance: SOTORASIB
     Indication: Non-small cell lung cancer
     Dosage: 960 MILLIGRAM
     Route: 048
  2. LUMAKRAS [Suspect]
     Active Substance: SOTORASIB
     Indication: K-ras gene mutation
     Dosage: 480 MILLIGRAM
     Route: 048
     Dates: start: 20231018, end: 2023
  3. LUMAKRAS [Suspect]
     Active Substance: SOTORASIB
     Dosage: 240 MILLIGRAM
     Route: 048
     Dates: start: 2023
  4. LUMAKRAS [Suspect]
     Active Substance: SOTORASIB
     Dosage: UNK, RESUMED
     Route: 048

REACTIONS (5)
  - Death [Fatal]
  - Metastases to bone [Unknown]
  - Pneumonia [Unknown]
  - Hepatic function abnormal [Recovered/Resolved]
  - Diarrhoea [Not Recovered/Not Resolved]

NARRATIVE: CASE EVENT DATE: 20230101
